FAERS Safety Report 18643219 (Version 12)
Quarter: 2022Q1

REPORT INFORMATION
  Report Type: Report from Study
  Country: US (occurrence: US)
  Receive Date: 20201221
  Receipt Date: 20220107
  Transmission Date: 20220424
  Serious: Yes (Hospitalization)
  Sender: FDA-Public Use
  Company Number: NVSC2020US329734

PATIENT
  Age: 26 Year
  Sex: Female
  Weight: 78 kg

DRUGS (10)
  1. TREPROSTINIL [Suspect]
     Active Substance: TREPROSTINIL
     Indication: Pulmonary arterial hypertension
     Dosage: (6 NG/KG/MIN) CONT
     Route: 042
     Dates: start: 20201119
  2. TREPROSTINIL [Suspect]
     Active Substance: TREPROSTINIL
     Dosage: (22 NG/KG/MIN) CONT
     Route: 042
  3. TREPROSTINIL [Suspect]
     Active Substance: TREPROSTINIL
     Dosage: (50 NG/KG/MIN) (STRENGTH 2.5MG/ML) CONT
     Route: 042
  4. TREPROSTINIL [Suspect]
     Active Substance: TREPROSTINIL
     Dosage: (34 NG/KG/MIN) CONT
     Route: 042
  5. TREPROSTINIL [Suspect]
     Active Substance: TREPROSTINIL
     Dosage: (40 NG/KG/MIN) CONT
     Route: 042
  6. TREPROSTINIL [Suspect]
     Active Substance: TREPROSTINIL
     Dosage: (50 NG/KG/MIN) (STRENGTH 2.5MG/ML) CONT
     Route: 042
  7. TREPROSTINIL [Suspect]
     Active Substance: TREPROSTINIL
     Dosage: (52.7 NG/KG/MIN), CONT
     Route: 042
  8. ORENITRAM [Suspect]
     Active Substance: TREPROSTINIL
     Indication: Product used for unknown indication
     Dosage: UNK
     Route: 065
  9. XARELTO [Concomitant]
     Active Substance: RIVAROXABAN
     Indication: Product used for unknown indication
     Dosage: UNK
     Route: 065
  10. SILDENAFIL CITRATE [Concomitant]
     Active Substance: SILDENAFIL CITRATE
     Indication: Product used for unknown indication
     Dosage: UNK
     Route: 065

REACTIONS (38)
  - Vascular device infection [Unknown]
  - Loss of consciousness [Unknown]
  - Head injury [Unknown]
  - Heart rate increased [Unknown]
  - Chills [Unknown]
  - Fall [Unknown]
  - Pyrexia [Unknown]
  - Seizure [Unknown]
  - Tinnitus [Unknown]
  - Nasopharyngitis [Unknown]
  - Dizziness [Unknown]
  - Vomiting [Unknown]
  - Nausea [Unknown]
  - Skin irritation [Unknown]
  - Pyrexia [Unknown]
  - Arthralgia [Unknown]
  - Blister [Unknown]
  - Movement disorder [Unknown]
  - Eating disorder [Unknown]
  - Musculoskeletal discomfort [Unknown]
  - Mobility decreased [Unknown]
  - Myalgia [Unknown]
  - Hypersensitivity [Unknown]
  - Sneezing [Unknown]
  - Cough [Unknown]
  - Gastrointestinal disorder [Unknown]
  - Migraine [Unknown]
  - Erythema [Unknown]
  - Urticaria [Unknown]
  - Peripheral swelling [Unknown]
  - COVID-19 [Unknown]
  - Pulmonary arterial pressure increased [Unknown]
  - Dyspnoea [Unknown]
  - Pruritus [Unknown]
  - Rash [Unknown]
  - Injection site haemorrhage [Unknown]
  - Medical device site discharge [Unknown]
  - Device leakage [Unknown]

NARRATIVE: CASE EVENT DATE: 20201208
